FAERS Safety Report 10768663 (Version 3)
Quarter: 2018Q1

REPORT INFORMATION
  Report Type: Report from Study
  Country: None (occurrence: BR)
  Receive Date: 20150206
  Receipt Date: 20180322
  Transmission Date: 20180508
  Serious: Yes (Disabling, Other)
  Sender: FDA-Public Use
  Company Number: BR-ABBVIE-15P-020-1340737-00

PATIENT
  Age: 72 Year
  Sex: Female
  Weight: 77 kg

DRUGS (1)
  1. HUMIRA [Suspect]
     Active Substance: ADALIMUMAB
     Indication: PSORIATIC ARTHROPATHY
     Route: 058
     Dates: start: 20140130

REACTIONS (12)
  - Bedridden [Unknown]
  - Femur fracture [Unknown]
  - Medical device site joint pain [Unknown]
  - Femur fracture [Unknown]
  - Spinal column stenosis [Unknown]
  - Fall [Recovered/Resolved]
  - Asthenia [Unknown]
  - Post-traumatic pain [Recovered/Resolved]
  - Malaise [Unknown]
  - Nervousness [Unknown]
  - Mobility decreased [Unknown]
  - Arthritis [Unknown]

NARRATIVE: CASE EVENT DATE: 201410
